FAERS Safety Report 6915496-0 (Version None)
Quarter: 2010Q3

REPORT INFORMATION
  Report Type: 
  Country: None (occurrence: None)
  Receive Date: 20100809
  Receipt Date: 20100730
  Transmission Date: 20110219
  Serious: Yes (Hospitalization)
  Sender: FDA-Public Use
  Company Number: TW-AMGEN-QUU429178

PATIENT
  Sex: Female

DRUGS (1)
  1. ENBREL [Suspect]
     Indication: PRODUCT USED FOR UNKNOWN INDICATION
     Route: 058
     Dates: start: 20100715, end: 20100715

REACTIONS (4)
  - COUGH [None]
  - DECREASED IMMUNE RESPONSIVENESS [None]
  - HAEMATOCHEZIA [None]
  - PYREXIA [None]
